FAERS Safety Report 8675716 (Version 2)
Quarter: 2013Q4

REPORT INFORMATION
  Report Type: Spontaneous
  Country: US (occurrence: US)
  Receive Date: 20120720
  Receipt Date: 20131101
  Transmission Date: 20140711
  Serious: No
  Sender: FDA-Public Use
  Company Number: US-009507513-1207USA005300

PATIENT
  Age: 65 Year
  Sex: Female

DRUGS (4)
  1. NASONEX [Suspect]
     Indication: HYPERSENSITIVITY
     Dosage: 100 MICROGRAM, QD
     Route: 045
     Dates: start: 2011, end: 201206
  2. ALLEGRA [Concomitant]
  3. GLUCOSAMINE [Concomitant]
  4. CHONDROITIN [Concomitant]

REACTIONS (2)
  - Eye swelling [Recovering/Resolving]
  - Eye pain [Recovering/Resolving]
